FAERS Safety Report 4695332-6 (Version None)
Quarter: 2005Q2

REPORT INFORMATION
  Report Type: 
  Country: None (occurrence: None)
  Receive Date: 20050124
  Receipt Date: 20050124
  Transmission Date: 20051028
  Serious: Yes (Other)
  Sender: FDA-Public Use
  Company Number: None

PATIENT
  Age: 79 Year
  Sex: Female
  Weight: 86.637 kg

DRUGS (1)
  1. TAZTIA [Suspect]
     Indication: HYPERTENSION
     Dosage: BY MOUTH

REACTIONS (2)
  - DIZZINESS [None]
  - NAUSEA [None]
